FAERS Safety Report 15402002 (Version 1)
Quarter: 2018Q3

REPORT INFORMATION
  Report Type: Spontaneous
  Country: US (occurrence: US)
  Receive Date: 20180915
  Receipt Date: 20180915
  Transmission Date: 20181010
  Serious: Yes (Other)
  Sender: FDA-Public Use
  Company Number: None

PATIENT
  Age: 67 Year
  Sex: Male
  Weight: 146.25 kg

DRUGS (23)
  1. METHOCARBAMOL. [Suspect]
     Active Substance: METHOCARBAMOL
     Indication: MUSCLE SPASMS
     Dosage: ?          QUANTITY:3 TABLET(S);?
     Route: 048
     Dates: start: 19980610, end: 20180913
  2. BACLOFEN. [Concomitant]
     Active Substance: BACLOFEN
  3. INSULIN R [Concomitant]
  4. METFORMIN [Concomitant]
     Active Substance: METFORMIN HYDROCHLORIDE
  5. MAGNESIUM [Concomitant]
     Active Substance: MAGNESIUM
  6. VITAMIN B12 [Concomitant]
     Active Substance: CYANOCOBALAMIN
  7. BACLOFEN. [Suspect]
     Active Substance: BACLOFEN
     Indication: MUSCLE SPASMS
     Dosage: ?          QUANTITY:1 CAPSULE(S);?
     Route: 048
  8. ATENOLOL. [Concomitant]
     Active Substance: ATENOLOL
  9. FUROSIMIDE [Concomitant]
     Active Substance: FUROSEMIDE
  10. SINGULAIR [Concomitant]
     Active Substance: MONTELUKAST SODIUM
  11. ALBUTEROL. [Concomitant]
     Active Substance: ALBUTEROL
  12. BECLAMETHOZONE [Concomitant]
  13. METHOCARBAMOL. [Suspect]
     Active Substance: METHOCARBAMOL
     Indication: MUSCULOSKELETAL STIFFNESS
     Dosage: ?          QUANTITY:3 TABLET(S);?
     Route: 048
     Dates: start: 19980610, end: 20180913
  14. METHOCARBAMOL. [Suspect]
     Active Substance: METHOCARBAMOL
     Indication: PAIN
     Dosage: ?          QUANTITY:3 TABLET(S);?
     Route: 048
     Dates: start: 19980610, end: 20180913
  15. ATORVASTATIN [Concomitant]
     Active Substance: ATORVASTATIN
  16. WARFARIN [Concomitant]
     Active Substance: WARFARIN
  17. MORPHINE [Concomitant]
     Active Substance: MORPHINE
  18. LANTUS [Concomitant]
     Active Substance: INSULIN GLARGINE
  19. DIGOXIN. [Concomitant]
     Active Substance: DIGOXIN
  20. ALLOPURINAL [Concomitant]
     Active Substance: ALLOPURINOL
  21. CALCIUM [Concomitant]
     Active Substance: CALCIUM
  22. VITAMIN D3 [Concomitant]
     Active Substance: CHOLECALCIFEROL
  23. LISINOPRIL. [Concomitant]
     Active Substance: LISINOPRIL

REACTIONS (6)
  - Pain in extremity [None]
  - Sneezing [None]
  - Drug withdrawal syndrome [None]
  - Rhinorrhoea [None]
  - Diabetic neuropathy [None]
  - Restless legs syndrome [None]

NARRATIVE: CASE EVENT DATE: 20180914
